FAERS Safety Report 6521054-2 (Version None)
Quarter: 2009Q4

REPORT INFORMATION
  Report Type: 
  Country: None (occurrence: None)
  Receive Date: 20091229
  Receipt Date: 20091217
  Transmission Date: 20100525
  Serious: Yes (Death)
  Sender: FDA-Public Use
  Company Number: US-PFIZER INC-2009200447

PATIENT
  Sex: Female
  Weight: 113 kg

DRUGS (14)
  1. GEODON [Suspect]
     Dosage: 40 MG, 1X/DAY
     Dates: start: 20081022
  2. TRAMADOL HYDROCHLORIDE [Suspect]
     Dosage: 50 MG, UNK
     Dates: start: 20081003
  3. ABILIFY [Suspect]
     Dosage: 5 MG, UNK
  4. ZOLPIDEM [Suspect]
  5. FUROSEMIDE [Concomitant]
     Dosage: 20 MG,
  6. POTASSIUM CHLORIDE [Concomitant]
     Dosage: 10 MEQ, UNK
  7. EFFEXOR [Concomitant]
     Dosage: 150 MG, UNK
  8. BUSPAR [Concomitant]
     Dosage: 15 MG, UNK
     Dates: start: 20081023
  9. FOLIC ACID [Concomitant]
     Dosage: 1 MG, UNK
  10. SUCRALFATE [Concomitant]
     Dosage: 1 G, UNK
     Dates: start: 20081010
  11. EFFEXOR XR [Concomitant]
     Dosage: 75 MG, UNK
  12. LAMOTRIGINE [Concomitant]
     Indication: CONVULSION
     Dosage: 25 MG, UNK
     Dates: start: 20081003
  13. OMEPRAZOLE [Concomitant]
     Dosage: 20 MG, UNK
     Dates: start: 20081003
  14. ERY-TAB [Concomitant]
     Dosage: 333 MG, UNK

REACTIONS (3)
  - DYSPNOEA [None]
  - MYOCARDIAL INFARCTION [None]
  - PRODUCT QUALITY ISSUE [None]
